FAERS Safety Report 4929790-6 (Version None)
Quarter: 2006Q1

REPORT INFORMATION
  Report Type: 
  Country: None (occurrence: None)
  Receive Date: 20060301
  Receipt Date: 20050930
  Transmission Date: 20060701
  Serious: Yes (Hospitalization)
  Sender: FDA-Public Use
  Company Number: US-MERCK-0510USA02054

PATIENT
  Age: 57 Year
  Sex: Male
  Weight: 105 kg

DRUGS (13)
  1. VIOXX [Suspect]
     Indication: ARTHRITIS
     Route: 048
     Dates: start: 20000101, end: 20040101
  2. VIOXX [Suspect]
     Indication: OSTEOARTHRITIS
     Route: 048
     Dates: start: 20000101, end: 20040101
  3. AVALIDE [Concomitant]
     Route: 065
  4. ALLOPURINOL [Concomitant]
     Indication: NEPHROLITHIASIS
     Route: 065
  5. ALLOPURINOL [Concomitant]
     Indication: BLOOD URIC ACID INCREASED
     Route: 065
  6. MECLIZINE [Concomitant]
     Route: 065
  7. PROMETHAZINE [Concomitant]
     Route: 065
  8. ALTACE [Concomitant]
     Indication: HYPERTENSION
     Route: 065
     Dates: start: 20010701
  9. LOPID [Concomitant]
     Indication: BLOOD CHOLESTEROL
     Route: 065
  10. ADVIL [Concomitant]
     Indication: ARTHRALGIA
     Route: 065
  11. ALEVE [Concomitant]
     Indication: ARTHRALGIA
     Route: 065
  12. TYLENOL (CAPLET) [Concomitant]
     Indication: ARTHRALGIA
     Route: 065
  13. BEXTRA [Concomitant]
     Indication: OSTEOARTHRITIS
     Route: 065

REACTIONS (8)
  - ACUTE MYOCARDIAL INFARCTION [None]
  - AGEUSIA [None]
  - ANOSMIA [None]
  - CEREBROVASCULAR ACCIDENT [None]
  - COUGH [None]
  - HYPERTENSION [None]
  - MULTIPLE SCLEROSIS [None]
  - POLLAKIURIA [None]
